FAERS Safety Report 10461056 (Version 1)
Quarter: 2014Q3

REPORT INFORMATION
  Report Type: Spontaneous
  Country: US (occurrence: None)
  Receive Date: 20140917
  Receipt Date: 20140917
  Transmission Date: 20150326
  Serious: Yes (Life-Threatening, Hospitalization)
  Sender: FDA-Public Use
  Company Number: None

PATIENT
  Age: 65 Year
  Sex: Female
  Weight: 116 kg

DRUGS (1)
  1. EFFIENT [Suspect]
     Active Substance: PRASUGREL HYDROCHLORIDE
     Indication: CORONARY ARTERIAL STENT INSERTION
     Route: 048

REACTIONS (5)
  - Intracranial pressure increased [None]
  - Hypertension [None]
  - Headache [None]
  - Brain oedema [None]
  - Haemorrhage intracranial [None]

NARRATIVE: CASE EVENT DATE: 20140820
